FAERS Safety Report 12407509 (Version 1)
Quarter: 2016Q2

REPORT INFORMATION
  Report Type: Report from Study
  Country: US (occurrence: US)
  Receive Date: 20160526
  Receipt Date: 20160526
  Transmission Date: 20160815
  Serious: No
  Sender: FDA-Public Use
  Company Number: GXBR2015US001192

PATIENT
  Sex: Male

DRUGS (1)
  1. OMNITROPE [Suspect]
     Active Substance: SOMATROPIN
     Indication: HYPOPITUITARISM
     Dosage: 1.0 MG, QD
     Route: 065
     Dates: start: 20150318

REACTIONS (2)
  - Incorrect dose administered [Recovered/Resolved]
  - Drug administered in wrong device [Recovered/Resolved]
